FAERS Safety Report 24612179 (Version 1)
Quarter: 2024Q4

REPORT INFORMATION
  Report Type: Spontaneous
  Country: IE (occurrence: IE)
  Receive Date: 20241113
  Receipt Date: 20241113
  Transmission Date: 20250115
  Serious: Yes (Other)
  Sender: CELLTRION
  Company Number: IE-CELLTRION INC.-2024IE027838

PATIENT

DRUGS (4)
  1. ADALIMUMAB [Suspect]
     Active Substance: ADALIMUMAB
     Indication: Colitis ulcerative
     Dosage: 80 MG (STARTING DOSE)
  2. ADALIMUMAB [Suspect]
     Active Substance: ADALIMUMAB
     Dosage: 40 MG, FORTNIGHTLY (MAINTENANCE DOSE)
  3. INFLIXIMAB [Suspect]
     Active Substance: INFLIXIMAB
     Indication: Colitis ulcerative
  4. PENTASA [Concomitant]
     Active Substance: MESALAMINE
     Indication: Colitis ulcerative
     Dosage: 2 G, TWICE DAILY

REACTIONS (4)
  - Organising pneumonia [Recovered/Resolved]
  - Dyspnoea [Unknown]
  - Flushing [Unknown]
  - Vomiting [Unknown]
